FAERS Safety Report 14128509 (Version 1)
Quarter: 2017Q4

REPORT INFORMATION
  Report Type: Spontaneous
  Country: RU (occurrence: RU)
  Receive Date: 20171026
  Receipt Date: 20171026
  Transmission Date: 20180321
  Serious: Yes (Other)
  Sender: FDA-Public Use
  Company Number: RU-ASTRAZENECA-2017SF08033

PATIENT
  Age: 68 Year
  Sex: Female
  Weight: 82 kg

DRUGS (10)
  1. OMEZ [Concomitant]
     Active Substance: OMEPRAZOLE
  2. MEXIDOL [Concomitant]
  3. ASPIRIN CARDIO [Concomitant]
     Active Substance: ASPIRIN
  4. ROSUVASTATIN. [Concomitant]
     Active Substance: ROSUVASTATIN
  5. BRILINTA [Suspect]
     Active Substance: TICAGRELOR
     Indication: MYOCARDIAL INFARCTION
     Route: 048
     Dates: start: 201701
  6. VALSARTAN. [Concomitant]
     Active Substance: VALSARTAN
  7. ACTOVEGIN [Concomitant]
     Active Substance: BLOOD, BOVINE
  8. BETALOC ZOK [Concomitant]
     Active Substance: METOPROLOL SUCCINATE
  9. XANAX [Concomitant]
     Active Substance: ALPRAZOLAM
  10. ATARAX [Concomitant]
     Active Substance: HYDROXYZINE HYDROCHLORIDE

REACTIONS (7)
  - Tachycardia [Not Recovered/Not Resolved]
  - Fall [Unknown]
  - Dizziness [Not Recovered/Not Resolved]
  - Decreased appetite [Not Recovered/Not Resolved]
  - Hypertensive crisis [Recovered/Resolved]
  - Weight decreased [Not Recovered/Not Resolved]
  - Dyspnoea exertional [Not Recovered/Not Resolved]

NARRATIVE: CASE EVENT DATE: 201701
